FAERS Safety Report 5952082-3 (Version None)
Quarter: 2008Q4

REPORT INFORMATION
  Report Type: 
  Country: None (occurrence: None)
  Receive Date: 20081113
  Receipt Date: 20080317
  Transmission Date: 20090506
  Serious: No
  Sender: FDA-Public Use
  Company Number: A0715799A

PATIENT
  Age: 68 Year
  Sex: Male

DRUGS (5)
  1. COREG [Suspect]
     Dosage: 12.5MG TWICE PER DAY
     Dates: start: 20060101
  2. COREG CR [Suspect]
     Dosage: 80MG PER DAY
     Route: 048
     Dates: start: 20071128
  3. SPIRONOLACTONE [Concomitant]
  4. COUMADIN [Concomitant]
  5. COZAAR [Concomitant]

REACTIONS (1)
  - HYPERGLYCAEMIA [None]
